FAERS Safety Report 18352374 (Version 3)
Quarter: 2020Q4

REPORT INFORMATION
  Report Type: Spontaneous
  Country: US (occurrence: US)
  Receive Date: 20201006
  Receipt Date: 20201112
  Transmission Date: 20210114
  Serious: Yes (Death, Life-Threatening, Other)
  Sender: FDA-Public Use
  Company Number: US-GILEAD-2020-0497536

PATIENT
  Age: 76 Year
  Sex: Female
  Weight: 105.49 kg

DRUGS (8)
  1. REMDESIVIR. [Suspect]
     Active Substance: REMDESIVIR
     Indication: COVID-19
     Dosage: 200 MG, ONCE
     Route: 042
     Dates: start: 20200930, end: 20200930
  2. INSULIN DETEMIR [Concomitant]
     Active Substance: INSULIN DETEMIR
     Indication: DIABETES MELLITUS
     Dosage: SLIDING SCALE
     Route: 058
     Dates: start: 20200930, end: 20201106
  3. FAMOTIDINE. [Concomitant]
     Active Substance: FAMOTIDINE
     Dosage: 20 MG
     Route: 042
     Dates: start: 20200930, end: 20201001
  4. PIPERACILLIN AND TAZOBACTAM [Concomitant]
     Active Substance: PIPERACILLIN SODIUM\TAZOBACTAM SODIUM
     Indication: PNEUMONIA
  5. ACETAMINOPHEN. [Concomitant]
     Active Substance: ACETAMINOPHEN
     Indication: PAIN
     Dosage: 65 MG
     Route: 048
     Dates: start: 20200930, end: 20201106
  6. DEXAMETHASONE. [Concomitant]
     Active Substance: DEXAMETHASONE
     Indication: COVID-19
     Dosage: 6 MG
     Route: 048
     Dates: start: 20200930, end: 20201008
  7. INSULIN ASPART [Concomitant]
     Active Substance: INSULIN ASPART
     Indication: DIABETES MELLITUS
     Dosage: SLIDING SCALE
     Route: 058
     Dates: start: 20200930, end: 20201106
  8. PIPERACILLIN AND TAZOBACTAM [Concomitant]
     Active Substance: PIPERACILLIN SODIUM\TAZOBACTAM SODIUM
     Indication: URINARY TRACT INFECTION
     Dosage: 4.5 MG
     Route: 042
     Dates: start: 20200930, end: 20201003

REACTIONS (16)
  - Toxic encephalopathy [Fatal]
  - Troponin increased [Recovered/Resolved]
  - Rash [Not Recovered/Not Resolved]
  - Renal impairment [Not Recovered/Not Resolved]
  - Oxygen saturation decreased [Fatal]
  - Somnolence [Fatal]
  - Acute respiratory failure [Fatal]
  - Endotracheal intubation [Fatal]
  - Respiratory distress [Fatal]
  - Ventricular tachycardia [Recovered/Resolved]
  - Acute kidney injury [Fatal]
  - Septic shock [Fatal]
  - General physical health deterioration [Not Recovered/Not Resolved]
  - COVID-19 pneumonia [Fatal]
  - Staphylococcal bacteraemia [Fatal]
  - Acute myocardial infarction [Recovered/Resolved]

NARRATIVE: CASE EVENT DATE: 20200930
